FAERS Safety Report 4559472-4 (Version None)
Quarter: 2005Q1

REPORT INFORMATION
  Report Type: 
  Country: None (occurrence: None)
  Receive Date: 20050119
  Receipt Date: 20050111
  Transmission Date: 20050727
  Serious: Yes (Life-Threatening)
  Sender: FDA-Public Use
  Company Number: 2005009895

PATIENT
  Age: 71 Year
  Sex: Female
  Weight: 60 kg

DRUGS (7)
  1. AMLODIPINE [Suspect]
     Indication: HYPERTENSION
     Dosage: 5 MG (5 MG, QD), ORAL
     Route: 048
     Dates: start: 20041006, end: 20041009
  2. PIPERACILLIN [Suspect]
     Indication: LYMPHANGITIS
     Dosage: 4 GRAMS (2 GRAM, BID), INTRAVENOUS
     Route: 042
     Dates: start: 20040928, end: 20041008
  3. DOXAZOSIN MESYLATE [Concomitant]
  4. TELMISARTAN (TELMISARTAN) [Concomitant]
  5. FAMOTIDINE [Concomitant]
  6. ETIZOLAM (ETIZOLAM) [Concomitant]
  7. MAGNESIUM OXIDE (MAGNESIUM OXIDE) [Concomitant]

REACTIONS (4)
  - HAEMORRHAGE SUBCUTANEOUS [None]
  - HYPERTENSION [None]
  - PLATELET COUNT DECREASED [None]
  - RENAL FAILURE ACUTE [None]
